FAERS Safety Report 12831772 (Version 4)
Quarter: 2017Q2

REPORT INFORMATION
  Report Type: Report from Study
  Country: US (occurrence: US)
  Receive Date: 20161010
  Receipt Date: 20170504
  Transmission Date: 20170830
  Serious: Yes (Life-Threatening, Hospitalization, Other)
  Sender: FDA-Public Use
  Company Number: US-ROCHE-1653732

PATIENT
  Age: 57 Year
  Sex: Female
  Weight: 59.33 kg

DRUGS (5)
  1. PACLITAXEL. [Suspect]
     Active Substance: PACLITAXEL
     Dosage: LAST DOSE PRIOR TO SAE- 24/SEP/2015
     Route: 033
     Dates: start: 20150924
  2. BEVACIZUMAB [Suspect]
     Active Substance: BEVACIZUMAB
     Indication: OVARIAN EPITHELIAL CANCER
     Dosage: IV OVER 30-90 MINUTES (BEGINNING IN COURSE 2) ON DAY 1
     Route: 042
     Dates: end: 20151008
  3. VELIPARIB [Suspect]
     Active Substance: VELIPARIB
     Indication: OVARIAN EPITHELIAL CANCER
     Dosage: LAST DOSE PRIOR TO SAE- 12/OCT/2015?OVER 3 HOUR ON DAY 1
     Route: 042
     Dates: start: 20150915
  4. CISPLATIN. [Suspect]
     Active Substance: CISPLATIN
     Indication: OVARIAN EPITHELIAL CANCER
     Dosage: LAST DOSE PRIOR TO SAE- 08/OCT/2015
     Route: 065
     Dates: start: 20150917
  5. PACLITAXEL. [Suspect]
     Active Substance: PACLITAXEL
     Indication: OVARIAN EPITHELIAL CANCER
     Dosage: LAST DOSE PRIOR TO SAE- 08/OCT/2015
     Route: 033
     Dates: start: 20150917

REACTIONS (20)
  - Pneumothorax [Recovering/Resolving]
  - Hypertension [Unknown]
  - Hypernatraemia [Unknown]
  - Pneumothorax [Unknown]
  - Large intestine perforation [Unknown]
  - Hypomagnesaemia [Unknown]
  - Neutrophil count decreased [Unknown]
  - Fatigue [Unknown]
  - Sepsis [Unknown]
  - Dyspnoea [Unknown]
  - White blood cell count decreased [Unknown]
  - Anaemia [Unknown]
  - Pelvic pain [Unknown]
  - Hypomagnesaemia [Unknown]
  - Abdominal pain [Unknown]
  - Anxiety [Unknown]
  - Lymphocyte count decreased [Unknown]
  - Hypermagnesaemia [Unknown]
  - Hyponatraemia [Unknown]
  - Hypermagnesaemia [Unknown]

NARRATIVE: CASE EVENT DATE: 20151014
